FAERS Safety Report 9423261 (Version 1)
Quarter: 2013Q3

REPORT INFORMATION
  Report Type: Spontaneous
  Country: JP (occurrence: JP)
  Receive Date: 20130726
  Receipt Date: 20130726
  Transmission Date: 20140515
  Serious: Yes (Hospitalization)
  Sender: FDA-Public Use
  Company Number: JP-BAUSCH-BL-2013-004302

PATIENT
  Age: 62 Year
  Sex: Female

DRUGS (8)
  1. BRONUCK OPHTHALMIC SOLUTION 0.1% [Suspect]
     Indication: UVEITIS
     Route: 047
     Dates: start: 20120829, end: 20121203
  2. LUMIGAN OPHTHALMIC SOLUTION 0.03% [Suspect]
     Indication: GLAUCOMA
     Route: 047
     Dates: start: 20130328
  3. RINDERON-A [Concomitant]
     Indication: PRODUCT USED FOR UNKNOWN INDICATION
     Dates: end: 20130328
  4. CRAVIT [Concomitant]
     Indication: PRODUCT USED FOR UNKNOWN INDICATION
     Route: 047
     Dates: end: 20120314
  5. MYDRIN-P [Concomitant]
     Route: 047
     Dates: start: 20120314, end: 20130328
  6. TRIAMCINOLONE [Concomitant]
     Indication: PRODUCT USED FOR UNKNOWN INDICATION
     Dosage: BOTH EYES
     Route: 056
     Dates: start: 20120829, end: 20120829
  7. TRIAMCINOLONE [Concomitant]
     Dosage: LEFT EYE
     Route: 056
     Dates: start: 20121106, end: 20121106
  8. TRIAMCINOLONE [Concomitant]
     Dosage: RIGHT EYE
     Route: 056
     Dates: start: 20121212, end: 20121212

REACTIONS (1)
  - Macular fibrosis [Recovered/Resolved with Sequelae]
